FAERS Safety Report 15160527 (Version 3)
Quarter: 2018Q4

REPORT INFORMATION
  Report Type: Report from Study
  Country: PL (occurrence: PL)
  Receive Date: 20180718
  Receipt Date: 20181005
  Transmission Date: 20190204
  Serious: Yes (Other)
  Sender: FDA-Public Use
  Company Number: PL-PFIZER INC-2018271993

PATIENT

DRUGS (2)
  1. GABAPENTIN. [Suspect]
     Active Substance: GABAPENTIN
     Indication: CANCER PAIN
     Dosage: UNK
  2. CLORAZEPATE [Interacting]
     Active Substance: CLORAZEPATE DIPOTASSIUM
     Dosage: UNK

REACTIONS (3)
  - Sedation [Unknown]
  - Drug interaction [Unknown]
  - Coma [Unknown]
